FAERS Safety Report 9515477 (Version 3)
Quarter: 2013Q3

REPORT INFORMATION
  Report Type: Spontaneous
  Country: US (occurrence: US)
  Receive Date: 20130911
  Receipt Date: 20130930
  Transmission Date: 20140515
  Serious: Yes (Other)
  Sender: FDA-Public Use
  Company Number: US-PFIZER INC-2013260565

PATIENT
  Age: 35 Year
  Sex: Female
  Weight: 81.63 kg

DRUGS (2)
  1. XANAX [Suspect]
     Indication: PANIC ATTACK
     Dosage: 2 MG, 3X/DAY
     Dates: start: 20121101
  2. PROZAC [Concomitant]
     Indication: DEPRESSION
     Dosage: UNK

REACTIONS (1)
  - Road traffic accident [Unknown]
